FAERS Safety Report 17111421 (Version 1)
Quarter: 2019Q4

REPORT INFORMATION
  Report Type: Spontaneous
  Country: US (occurrence: US)
  Receive Date: 20191203
  Receipt Date: 20191203
  Transmission Date: 20200122
  Serious: Yes (Hospitalization)
  Sender: FDA-Public Use
  Company Number: None

PATIENT
  Age: 47 Year
  Sex: Male
  Weight: 134.2 kg

DRUGS (9)
  1. AXICABTAGENE CILOLEUCEL [Suspect]
     Active Substance: AXICABTAGENE CILOLEUCEL
     Dosage: ?          OTHER FREQUENCY:ONCE;?
     Route: 041
     Dates: start: 20190715, end: 20190715
  2. CETIRIZINE [Concomitant]
     Active Substance: CETIRIZINE HYDROCHLORIDE
  3. LETERMOVIR [Concomitant]
     Active Substance: LETERMOVIR
  4. ACYCLOVIR. [Concomitant]
     Active Substance: ACYCLOVIR
  5. CALCIUM CITRATE [Concomitant]
     Active Substance: CALCIUM CITRATE
  6. FAMOTIDINE. [Concomitant]
     Active Substance: FAMOTIDINE
  7. ALLOPURINOL. [Concomitant]
     Active Substance: ALLOPURINOL
  8. BUSLFAN [Concomitant]
     Active Substance: BUSULFAN
  9. PROCHLORPERAZINE. [Concomitant]
     Active Substance: PROCHLORPERAZINE

REACTIONS (3)
  - Hypotension [None]
  - Neurotoxicity [None]
  - Unresponsive to stimuli [None]

NARRATIVE: CASE EVENT DATE: 20190715
